FAERS Safety Report 18049759 (Version 1)
Quarter: 2020Q3

REPORT INFORMATION
  Report Type: Spontaneous
  Country: FI (occurrence: FI)
  Receive Date: 20200721
  Receipt Date: 20200721
  Transmission Date: 20201103
  Serious: Yes (Life-Threatening)
  Sender: FDA-Public Use
  Company Number: FI-PFIZER INC-2020274602

PATIENT
  Age: 61 Year
  Sex: Female

DRUGS (7)
  1. XANOR [Concomitant]
     Active Substance: ALPRAZOLAM
     Indication: ANXIETY
     Dosage: UNK UNK, AS NEEDED
     Route: 048
     Dates: start: 2014
  2. PROGYNOVA [ESTRADIOL VALERATE] [Concomitant]
     Active Substance: ESTRADIOL VALERATE
     Indication: MENOPAUSAL SYMPTOMS
     Dosage: 1 MG, DAILY
     Route: 048
     Dates: start: 2014, end: 20200607
  3. PREDNISOLON [PREDNISOLONE] [Concomitant]
     Active Substance: PREDNISOLONE
     Indication: RHEUMATOID ARTHRITIS
     Dosage: 2.5 MG, DAILY
     Route: 048
     Dates: start: 2015
  4. VENLAFAXINE [Concomitant]
     Active Substance: VENLAFAXINE HYDROCHLORIDE
     Indication: SLEEP DISORDER
     Dosage: 37.5 MG, DAILY
     Route: 048
     Dates: start: 2018
  5. TEMGESIC [Concomitant]
     Active Substance: BUPRENORPHINE HYDROCHLORIDE
     Indication: BACK PAIN
     Dosage: UNK UNK, AS NEEDED
     Route: 060
     Dates: start: 2014
  6. XELJANZ [Suspect]
     Active Substance: TOFACITINIB CITRATE
     Indication: RHEUMATOID ARTHRITIS
     Dosage: 10 MG, DAILY
     Route: 048
     Dates: start: 20190809, end: 20200607
  7. PROLIA [Concomitant]
     Active Substance: DENOSUMAB
     Indication: OSTEOPOROSIS
     Dosage: 60 MG, CYCLIC
     Route: 058
     Dates: start: 2016

REACTIONS (9)
  - Pulmonary embolism [Recovering/Resolving]
  - Neck pain [Recovering/Resolving]
  - Headache [Recovering/Resolving]
  - Heart rate increased [Recovering/Resolving]
  - Syncope [Recovering/Resolving]
  - Fatigue [Recovering/Resolving]
  - Oedema peripheral [Recovering/Resolving]
  - Contusion [Recovering/Resolving]
  - Arthralgia [Recovering/Resolving]

NARRATIVE: CASE EVENT DATE: 20200607
